FAERS Safety Report 9284581 (Version 1)
Quarter: 2013Q2

REPORT INFORMATION
  Report Type: Spontaneous
  Country: NL (occurrence: NL)
  Receive Date: 20130512
  Receipt Date: 20130512
  Transmission Date: 20140414
  Serious: Yes (Death)
  Sender: FDA-Public Use
  Company Number: NL-TEVA-402590ISR

PATIENT
  Age: 76 Year
  Sex: Female

DRUGS (14)
  1. AMOXICILLINE [Suspect]
     Indication: MENINGITIS BACTERIAL
     Dosage: 6 DD 2000 MG
     Route: 042
     Dates: start: 20121111, end: 20121115
  2. FUROSEMIDE TABLET 20MG [Concomitant]
     Dosage: 1  DD 1
     Route: 048
  3. CEFTRIAXON INFUSIEPOEDER 2000MG [Concomitant]
     Route: 042
  4. BISOPROLOL TABLET   2,5MG [Concomitant]
     Dosage: 1 DD 1
     Route: 048
  5. GANFORT OOGDRUPPELS FLACON 3ML [Concomitant]
     Route: 047
  6. ACENOCOUMAROL TABLET 1MG [Concomitant]
     Dosage: VOLGENS SCHEMA
     Route: 048
  7. VALSARTAN CAPSULE  80MG [Concomitant]
     Dosage: 1  DD 1
     Route: 048
  8. ENALAPRIL TABLET 20MG [Concomitant]
     Dosage: 1  DD 1
     Route: 048
  9. METOCLOPRAMIDE ZETPIL 20MG [Concomitant]
     Dosage: 1  DD 1
     Route: 054
  10. PARACETAMOL TABLET  500MG [Concomitant]
     Dosage: ZN 4 DD 2
     Route: 048
  11. SIMVASTATINE TABLET 40MG [Concomitant]
     Dosage: 1 DD 1
     Route: 048
  12. PILOCARPINE OOGDR  1,25MG/ML [Concomitant]
     Route: 047
  13. FYTOMENADION DRANK  1MG [Concomitant]
     Route: 048
  14. FRAXIPARINE INJVLST 9500IE/ML WWSP 0,3ML [Concomitant]
     Dosage: DOSERING ONBEKEND
     Route: 058

REACTIONS (2)
  - Renal failure acute [Fatal]
  - Anuria [Fatal]
